FAERS Safety Report 7675311-7 (Version None)
Quarter: 2011Q3

REPORT INFORMATION
  Report Type: 
  Country: None (occurrence: None)
  Receive Date: 20110810
  Receipt Date: 20110808
  Transmission Date: 20111222
  Serious: Yes (Death)
  Sender: FDA-Public Use
  Company Number: JP-ELI_LILLY_AND_COMPANY-JP201106006565

PATIENT
  Sex: Male

DRUGS (3)
  1. PANVITAN [Concomitant]
     Indication: PROPHYLAXIS
     Dosage: 1 G, OTHER
     Route: 048
     Dates: start: 20100810, end: 20100930
  2. ALIMTA [Suspect]
     Indication: PLEURAL MESOTHELIOMA MALIGNANT
     Dosage: 600 MG, OTHER
     Route: 042
     Dates: start: 20100817, end: 20100915
  3. METHYCOBAL [Concomitant]
     Indication: PROPHYLAXIS
     Dosage: 1 MG, QD
     Route: 030
     Dates: start: 20100810

REACTIONS (2)
  - INTERSTITIAL LUNG DISEASE [None]
  - CONSTIPATION [None]
